FAERS Safety Report 4442801-X (Version None)
Quarter: 2004Q3

REPORT INFORMATION
  Report Type: 
  Country: None (occurrence: None)
  Receive Date: 20040903
  Receipt Date: 20040609
  Transmission Date: 20050211
  Serious: Yes (Other)
  Sender: FDA-Public Use
  Company Number: 2004UW12033

PATIENT
  Age: 82 Year
  Sex: Female

DRUGS (2)
  1. CRESTOR [Suspect]
     Dosage: 10 MG QD PO
     Route: 048
     Dates: start: 20040224, end: 20040520
  2. INSULIN [Concomitant]

REACTIONS (1)
  - VISUAL DISTURBANCE [None]
